FAERS Safety Report 5526237-6 (Version None)
Quarter: 2007Q4

REPORT INFORMATION
  Report Type: 
  Country: None (occurrence: None)
  Receive Date: 20071127
  Receipt Date: 20071119
  Transmission Date: 20080405
  Serious: Yes (Other)
  Sender: FDA-Public Use
  Company Number: PHFR2007GB03406

PATIENT

DRUGS (2)
  1. LAMISIL [Suspect]
     Dosage: 250 MG/DAY
     Route: 048
  2. MELOXICAM [Concomitant]
     Route: 065

REACTIONS (5)
  - ABDOMINAL DISTENSION [None]
  - COLON CANCER [None]
  - HAEMATOCHEZIA [None]
  - LIVER DISORDER [None]
  - NAUSEA [None]
